FAERS Safety Report 12700275 (Version 2)
Quarter: 2020Q1

REPORT INFORMATION
  Report Type: Report from Study
  Country: US (occurrence: US)
  Receive Date: 20160830
  Receipt Date: 20200116
  Transmission Date: 20200409
  Serious: Yes (Other)
  Sender: FDA-Public Use
  Company Number: US-SA-2015SA131022

PATIENT
  Age: 56 Year
  Sex: Female
  Weight: 63.5 kg

DRUGS (14)
  1. VALIUM [Concomitant]
     Active Substance: DIAZEPAM
     Dosage: 5 MG,UNK
  2. NORTRIPTYLINE [Concomitant]
     Active Substance: NORTRIPTYLINE
     Dosage: 10 MG,PRN
  3. OXYCODONE [Concomitant]
     Active Substance: OXYCODONE
     Dosage: 5 MG,PRN
     Route: 048
  4. LEVOXYL [Concomitant]
     Active Substance: LEVOTHYROXINE SODIUM
     Dosage: 125 UG,UNK
  5. PARACETAMOL [Concomitant]
     Active Substance: ACETAMINOPHEN
     Indication: PREMEDICATION
     Dosage: DOSE: 650
     Route: 048
     Dates: start: 20090127
  6. DIAZEPAM. [Concomitant]
     Active Substance: DIAZEPAM
     Dosage: 5 MG,PRN
  7. GLICLAZIDE [Concomitant]
     Active Substance: GLICLAZIDE
     Dosage: UNK
  8. ALEVE [Concomitant]
     Active Substance: NAPROXEN SODIUM
     Dosage: UNK
  9. MEFENAMIC ACID. [Concomitant]
     Active Substance: MEFENAMIC ACID
     Dosage: UNK
  10. AMBIEN [Concomitant]
     Active Substance: ZOLPIDEM TARTRATE
     Dosage: UNK
  11. AGALSIDASE BETA [Suspect]
     Active Substance: AGALSIDASE BETA
     Dosage: 1 MG/KG, UNK
     Route: 041
     Dates: start: 20120904
  12. AGALSIDASE BETA [Suspect]
     Active Substance: AGALSIDASE BETA
     Indication: FABRY^S DISEASE
     Dosage: 1 MG/KG, 60.00 (UNITS NOT PROVIDED); ONCE EVERY 10 DAYS
     Route: 041
     Dates: start: 20090113, end: 20120824
  13. BENADRYL [Concomitant]
     Active Substance: DIPHENHYDRAMINE HYDROCHLORIDE
     Indication: PREMEDICATION
     Dosage: DOSE:50
     Route: 042
     Dates: start: 20090127
  14. SOLU-MEDROL [Concomitant]
     Active Substance: METHYLPREDNISOLONE SODIUM SUCCINATE
     Indication: PREMEDICATION
     Dosage: 40 MG,UNK
     Route: 042
     Dates: start: 20090127

REACTIONS (29)
  - Chronic kidney disease [Not Recovered/Not Resolved]
  - Glomerular filtration rate decreased [Unknown]
  - Diplopia [Unknown]
  - Blood creatinine increased [Unknown]
  - Asthenia [Unknown]
  - Headache [Unknown]
  - Ear discomfort [Unknown]
  - Sinus congestion [Unknown]
  - Abdominal discomfort [Recovered/Resolved]
  - Swelling face [Recovering/Resolving]
  - Pain [Not Recovered/Not Resolved]
  - Blood glucose increased [Unknown]
  - Pain in extremity [Unknown]
  - Cerebral disorder [Not Recovered/Not Resolved]
  - Pyrexia [Unknown]
  - Diarrhoea [Unknown]
  - Accident [Not Recovered/Not Resolved]
  - Cardiac disorder [Not Recovered/Not Resolved]
  - Red cell distribution width increased [Unknown]
  - Ear pain [Recovered/Resolved]
  - Vertigo positional [Unknown]
  - Arthralgia [Unknown]
  - Dizziness [Unknown]
  - Paraesthesia [Unknown]
  - Pain [Unknown]
  - Scar [Not Recovered/Not Resolved]
  - Monocyte count decreased [Unknown]
  - Sinusitis [Unknown]
  - Fatigue [Unknown]

NARRATIVE: CASE EVENT DATE: 200902
